FAERS Safety Report 11317933 (Version 2)
Quarter: 2015Q3

REPORT INFORMATION
  Report Type: Spontaneous
  Country: JP (occurrence: JP)
  Receive Date: 20150728
  Receipt Date: 20150908
  Transmission Date: 20151125
  Serious: Yes (Other)
  Sender: FDA-Public Use
  Company Number: JP-ABBVIE-15P-087-1434974-00

PATIENT
  Age: 38 Year
  Sex: Female

DRUGS (3)
  1. FESIN [Concomitant]
     Active Substance: IRON SUCROSE
     Indication: ANAEMIA
     Dosage: UNK
     Route: 050
     Dates: start: 20150518, end: 20150709
  2. LEUPLIN [Suspect]
     Active Substance: LEUPROLIDE ACETATE
     Indication: UTERINE LEIOMYOMA
     Dosage: 1.88 MG, Q4WEEKS
     Route: 058
     Dates: start: 20150518, end: 20150615
  3. LEUPLIN [Suspect]
     Active Substance: LEUPROLIDE ACETATE
     Dosage: 1.88 MG, Q4WEEKS
     Route: 058
     Dates: start: 20150808

REACTIONS (2)
  - Thrombocytopenia [Recovering/Resolving]
  - Pruritus [Unknown]

NARRATIVE: CASE EVENT DATE: 20150708
